FAERS Safety Report 7014666-3 (Version None)
Quarter: 2010Q3

REPORT INFORMATION
  Report Type: 
  Country: None (occurrence: None)
  Receive Date: 20100927
  Receipt Date: 20100915
  Transmission Date: 20110219
  Serious: Yes (Hospitalization)
  Sender: FDA-Public Use
  Company Number: US-JNJFOC-20100905775

PATIENT
  Sex: Female
  Weight: 63.5 kg

DRUGS (3)
  1. REMICADE [Suspect]
     Indication: RHEUMATOID ARTHRITIS
     Route: 042
  2. RECLAST [Concomitant]
     Indication: OSTEOARTHRITIS
  3. METHOTREXATE [Concomitant]
     Indication: RHEUMATOID ARTHRITIS

REACTIONS (6)
  - AMNESIA [None]
  - BODY HEIGHT DECREASED [None]
  - BRONCHITIS [None]
  - OSTEOGENESIS IMPERFECTA [None]
  - RASH MACULAR [None]
  - SPINAL OPERATION [None]
